FAERS Safety Report 25906024 (Version 1)
Quarter: 2025Q4

REPORT INFORMATION
  Report Type: Spontaneous
  Country: US (occurrence: None)
  Receive Date: 20251009
  Receipt Date: 20251009
  Transmission Date: 20260118
  Serious: Yes (Hospitalization)
  Sender: FDA-CTU
  Company Number: None

PATIENT
  Age: 89 Year
  Sex: Female

DRUGS (11)
  1. LENALIDOMIDE [Suspect]
     Active Substance: LENALIDOMIDE
     Indication: Plasma cell myeloma
     Route: 048
     Dates: start: 20250923
  2. ACYCLOVIR  CAP 200MG [Concomitant]
  3. ASPIRIN  TAB 325MG EC [Concomitant]
  4. BIOTIN   TAB 1000MCG [Concomitant]
  5. CENTRUM  CHW SILVER [Concomitant]
  6. CRESTOR  TAB  5MG [Concomitant]
  7. GARLIC   TAB 400MG [Concomitant]
  8. KP VITAMIN D [Concomitant]
  9. LASIX   TAB 20MG [Concomitant]
  10. LATANOPROST SOL 0.005% [Concomitant]
  11. LISINOPRIL [Concomitant]
     Active Substance: LISINOPRIL

REACTIONS (1)
  - Hospice care [None]

NARRATIVE: CASE EVENT DATE: 20251001
